FAERS Safety Report 6111040-9 (Version None)
Quarter: 2009Q1

REPORT INFORMATION
  Report Type: 
  Country: None (occurrence: None)
  Receive Date: 20090306
  Receipt Date: 20090224
  Transmission Date: 20090719
  Serious: Yes (Other)
  Sender: FDA-Public Use
  Company Number: 2009-00706

PATIENT
  Age: 72 Year
  Sex: Male

DRUGS (10)
  1. VELCADE [Suspect]
     Indication: DRUG USE FOR UNKNOWN INDICATION
  2. REVLIMID [Suspect]
     Indication: MULTIPLE MYELOMA
     Dosage: 5 MG, ORAL
     Route: 048
     Dates: start: 20071105
  3. DOXIL [Suspect]
     Indication: DRUG USE FOR UNKNOWN INDICATION
  4. DECADRON [Concomitant]
  5. ACYCLOVIR [Concomitant]
  6. LORAZEPAM [Concomitant]
  7. OMEPRAZOLE [Concomitant]
  8. MULTIVITAMIN [Concomitant]
  9. CALCIUM (CALCIUM) [Concomitant]
  10. MIRALAX [Concomitant]

REACTIONS (3)
  - BLOOD COUNT ABNORMAL [None]
  - PLATELET COUNT DECREASED [None]
  - STOMATITIS [None]
